FAERS Safety Report 4984911-4 (Version None)
Quarter: 2006Q2

REPORT INFORMATION
  Report Type: 
  Country: None (occurrence: None)
  Receive Date: 20060427
  Receipt Date: 20060113
  Transmission Date: 20061013
  Serious: Yes (Hospitalization, Other)
  Sender: FDA-Public Use
  Company Number: PHEH2006US00946

PATIENT
  Age: 77 Year
  Sex: Female
  Weight: 43 kg

DRUGS (9)
  1. TOPROL-XL [Concomitant]
     Indication: ATRIAL TACHYCARDIA
     Dosage: 50 MG, QD
     Route: 048
  2. SINEMET [Suspect]
     Indication: PARKINSON'S DISEASE
     Dosage: 1 TAB 6X/DAY
     Route: 048
  3. SINEMET [Suspect]
     Dosage: 1.5 TABS @2P, 5PM, 8PM, 11PM
     Route: 048
  4. AMANTADINE HCL [Concomitant]
     Indication: PARKINSON'S DISEASE
     Dosage: 100 MG, BID
     Route: 048
     Dates: start: 20030701
  5. REMERON [Concomitant]
     Indication: DEPRESSION
     Dosage: 15 MG, QHS
     Route: 048
     Dates: start: 20050201
  6. PAXIL [Concomitant]
     Indication: DEPRESSION
     Dosage: 10 MG, QD
     Route: 048
     Dates: start: 20051001
  7. SEROQUEL [Concomitant]
     Indication: INSOMNIA
     Dosage: 6.25 MG QHS
     Route: 048
     Dates: start: 20050201, end: 20060401
  8. COMTAN [Suspect]
     Indication: PARKINSON'S DISEASE
     Dosage: 200 MG, Q3H WHILE AWAKE FOR TOTAL OF 5 DOSES
     Route: 048
     Dates: start: 20050101
  9. FOSAMAX [Concomitant]
     Indication: OSTEOPOROSIS
     Dosage: 70 MG, QW
     Route: 048

REACTIONS (10)
  - ASTHENIA [None]
  - BLOOD BILIRUBIN INCREASED [None]
  - BLOOD LACTATE DEHYDROGENASE INCREASED [None]
  - HAEMATOCRIT DECREASED [None]
  - HAEMOGLOBIN DECREASED [None]
  - HAEMOLYTIC ANAEMIA [None]
  - MEAN CELL VOLUME INCREASED [None]
  - PANCYTOPENIA [None]
  - RED BLOOD CELL COUNT DECREASED [None]
  - SYNCOPE [None]
